FAERS Safety Report 5191101-1 (Version None)
Quarter: 2006Q4

REPORT INFORMATION
  Report Type: 
  Country: None (occurrence: None)
  Receive Date: 20061226
  Receipt Date: 20061218
  Transmission Date: 20070319
  Serious: Yes (Other)
  Sender: FDA-Public Use
  Company Number: PHRM2006FR03364

PATIENT
  Age: 22 Year
  Sex: Female

DRUGS (1)
  1. LAMISIL [Suspect]
     Indication: NAIL TINEA
     Route: 048
     Dates: end: 20060901

REACTIONS (2)
  - AUTOIMMUNE HEPATITIS [None]
  - TRANSAMINASES INCREASED [None]
